FAERS Safety Report 5623348-1 (Version None)
Quarter: 2008Q1

REPORT INFORMATION
  Report Type: 
  Country: None (occurrence: None)
  Receive Date: 20080212
  Receipt Date: 20080131
  Transmission Date: 20080703
  Serious: Yes (Hospitalization)
  Sender: FDA-Public Use
  Company Number: DE-SANOFI-SYNTHELABO-A01200801086

PATIENT
  Sex: Male

DRUGS (4)
  1. ACETYLSALICYLIC ACID SRT [Concomitant]
     Indication: ANTIPLATELET THERAPY
     Dosage: UNK
     Route: 065
  2. ASPIRIN [Concomitant]
     Indication: MYOCARDIAL INFARCTION
     Dosage: UNK
     Route: 065
  3. ISCOVER [Suspect]
     Indication: ANTIPLATELET THERAPY
     Dosage: ^SOMETIMES UP TO A DOSE OF 300 MG^
     Route: 048
  4. ISCOVER [Suspect]
     Indication: MYOCARDIAL INFARCTION
     Dosage: ^SOMETIMES UP TO A DOSE OF 300 MG^
     Route: 048

REACTIONS (3)
  - GASTROINTESTINAL INFECTION [None]
  - THERAPY REGIMEN CHANGED [None]
  - THROMBOSIS IN DEVICE [None]
